FAERS Safety Report 18640076 (Version 1)
Quarter: 2020Q4

REPORT INFORMATION
  Report Type: Spontaneous
  Country: ZA (occurrence: ZA)
  Receive Date: 20201220
  Receipt Date: 20201220
  Transmission Date: 20210114
  Serious: No
  Sender: FDA-Public Use
  Company Number: ZA-LUPIN PHARMACEUTICALS INC.-2020-10240

PATIENT
  Sex: Male

DRUGS (1)
  1. ZARTAN CO 100/25 [Suspect]
     Active Substance: HYDROCHLOROTHIAZIDE\LOSARTAN POTASSIUM
     Indication: HYPERTENSION
     Dosage: 100/25 MILLIGRAM, UNK
     Route: 048

REACTIONS (2)
  - Cough [Unknown]
  - Productive cough [Unknown]
